FAERS Safety Report 7379067-7 (Version None)
Quarter: 2011Q1

REPORT INFORMATION
  Report Type: 
  Country: None (occurrence: None)
  Receive Date: 20110328
  Receipt Date: 20110303
  Transmission Date: 20110831
  Serious: No
  Sender: FDA-Public Use
  Company Number: US-B.I. PHARMACEUTICALS,INC./RIDGEFIELD-2010-BP-15251BP

PATIENT
  Sex: Female

DRUGS (13)
  1. ACTONEL [Concomitant]
     Indication: OSTEOPOROSIS
  2. LEVOTHYROXINE SODIUM [Concomitant]
     Indication: HYPOTHYROIDISM
     Dosage: 100 MCG
  3. FUROSEMIDE [Concomitant]
     Dosage: 20 MG
  4. ZADITOR [Concomitant]
     Indication: EYE PRURITUS
  5. ALLOPURINOL [Concomitant]
     Indication: GOUT
     Dosage: 100 MG
  6. CALTRATE [Concomitant]
     Indication: OSTEOPOROSIS
  7. ABC PLUS [Concomitant]
  8. PRADAXA [Suspect]
     Indication: ATRIAL FIBRILLATION
     Dosage: 300 MG
     Route: 048
     Dates: start: 20101209, end: 20101219
  9. TRAMADOL [Concomitant]
     Indication: PAIN
  10. VITAMIN D [Concomitant]
     Dosage: 400 MG
  11. THERA TEARS [Concomitant]
     Indication: DRY EYE
  12. COMBIVENT [Concomitant]
     Indication: EMPHYSEMA
     Route: 055
  13. MULTAQ [Concomitant]
     Indication: ATRIAL FIBRILLATION
     Dosage: 400 MG

REACTIONS (4)
  - ABDOMINAL PAIN LOWER [None]
  - HAEMORRHOIDAL HAEMORRHAGE [None]
  - RECTAL HAEMORRHAGE [None]
  - BLOOD COUNT ABNORMAL [None]
